FAERS Safety Report 5342596-1 (Version None)
Quarter: 2007Q2

REPORT INFORMATION
  Report Type: 
  Country: None (occurrence: None)
  Receive Date: 20070601
  Receipt Date: 20070308
  Transmission Date: 20071010
  Serious: No
  Sender: FDA-Public Use
  Company Number: A0642443A

PATIENT
  Age: 34 Year
  Sex: Male

DRUGS (4)
  1. AUGMENTIN XR [Suspect]
     Indication: SKIN INFECTION
     Dosage: 2G TWICE PER DAY
     Route: 048
     Dates: start: 20070206, end: 20070213
  2. BACTROBAN [Suspect]
     Indication: CELLULITIS
     Dosage: 1APP THREE TIMES PER DAY
     Route: 045
     Dates: start: 20070221
  3. AVELOX [Suspect]
     Indication: SKIN INFECTION
     Dosage: 400MG PER DAY
     Route: 048
     Dates: start: 20070221, end: 20070227
  4. IBUPROFEN [Concomitant]

REACTIONS (6)
  - ANAL DISCOMFORT [None]
  - DIARRHOEA [None]
  - DRUG EFFECT DECREASED [None]
  - HEADACHE [None]
  - HYPERAESTHESIA [None]
  - SLEEP DISORDER [None]
